FAERS Safety Report 6804931-4 (Version None)
Quarter: 2010Q2

REPORT INFORMATION
  Report Type: 
  Country: None (occurrence: None)
  Receive Date: 20100628
  Receipt Date: 20070627
  Transmission Date: 20101027
  Serious: No
  Sender: FDA-Public Use
  Company Number: US-PFIZER INC-2007053088

PATIENT
  Age: 46 Year
  Sex: Male

DRUGS (3)
  1. PROCARDIA XL [Suspect]
     Indication: MYOCARDIAL INFARCTION
     Route: 048
     Dates: start: 19990101
  2. XANAX [Concomitant]
  3. LORAZEPAM [Concomitant]

REACTIONS (1)
  - IRRITABLE BOWEL SYNDROME [None]
